FAERS Safety Report 10692903 (Version 1)
Quarter: 2015Q1

REPORT INFORMATION
  Report Type: Spontaneous
  Country: US (occurrence: None)
  Receive Date: 20150105
  Receipt Date: 20150105
  Transmission Date: 20150720
  Serious: No
  Sender: FDA-Public Use
  Company Number: None

PATIENT
  Age: 33 Year
  Sex: Female

DRUGS (1)
  1. METHYLPHENIDATE [Suspect]
     Active Substance: METHYLPHENIDATE
     Indication: ATTENTION DEFICIT/HYPERACTIVITY DISORDER
     Dosage: ONE TABLET
     Route: 048
     Dates: start: 20131209, end: 20131227

REACTIONS (3)
  - Drug dose omission [None]
  - Legal problem [None]
  - Somnambulism [None]

NARRATIVE: CASE EVENT DATE: 20131219
